FAERS Safety Report 4771748-4 (Version None)
Quarter: 2005Q3

REPORT INFORMATION
  Report Type: 
  Country: None (occurrence: None)
  Receive Date: 20050916
  Receipt Date: 20050613
  Transmission Date: 20060218
  Serious: Yes (Congenital Anomaly)
  Sender: FDA-Public Use
  Company Number: US-MERCK-0506USA03353

PATIENT
  Sex: Female

DRUGS (3)
  1. ZOCOR [Suspect]
  2. DESIPRAMINE HYDROCHLORIDE [Concomitant]
  3. METOPROLOL [Concomitant]

REACTIONS (17)
  - ANOMALY OF EXTERNAL EAR CONGENITAL [None]
  - CONGENITAL CUTIS LAXA [None]
  - CONGENITAL FOOT MALFORMATION [None]
  - CONGENITAL MUSCULOSKELETAL ANOMALY [None]
  - ENLARGED CLITORIS [None]
  - FOETAL GROWTH RETARDATION [None]
  - HAEMANGIOMA [None]
  - HIGH ARCHED PALATE [None]
  - HYPOTONIA [None]
  - LIMB HYPOPLASIA CONGENITAL [None]
  - LIVEDO RETICULARIS [None]
  - NASAL DISORDER [None]
  - NECK DEFORMITY [None]
  - PREMATURE BABY [None]
  - SCAPHOCEPHALY [None]
  - SPEECH DISORDER [None]
  - WEIGHT GAIN POOR [None]
